FAERS Safety Report 9596389 (Version 1)
Quarter: 2013Q4

REPORT INFORMATION
  Report Type: Spontaneous
  Country: BR (occurrence: BR)
  Receive Date: 20131004
  Receipt Date: 20131004
  Transmission Date: 20140711
  Serious: Yes (Other)
  Sender: FDA-Public Use
  Company Number: BR-US-EMD SERONO, INC.-7238942

PATIENT
  Sex: Female

DRUGS (2)
  1. GONAL-F [Suspect]
     Indication: IN VITRO FERTILISATION
     Dates: start: 201210
  2. GONAL-F [Suspect]
     Dates: start: 201307

REACTIONS (4)
  - Abortion [Recovered/Resolved]
  - Drug-induced liver injury [Not Recovered/Not Resolved]
  - Expired drug administered [Unknown]
  - Incorrect product storage [Unknown]
